FAERS Safety Report 9458324 (Version 1)
Quarter: 2013Q3

REPORT INFORMATION
  Report Type: Spontaneous
  Country: US (occurrence: None)
  Receive Date: 20130813
  Receipt Date: 20130813
  Transmission Date: 20140515
  Serious: Yes (Other)
  Sender: FDA-Public Use
  Company Number: None

PATIENT
  Age: 70 Year
  Sex: Female

DRUGS (1)
  1. SUTENT [Suspect]
     Dosage: 50MG QD PO
     Route: 048
     Dates: start: 20120525, end: 20130717

REACTIONS (4)
  - Stomatitis [None]
  - Skin ulcer [None]
  - Weight decreased [None]
  - Dementia [None]
